FAERS Safety Report 9387651 (Version 4)
Quarter: 2014Q1

REPORT INFORMATION
  Report Type: Spontaneous
  Country: CN (occurrence: CN)
  Receive Date: 20130708
  Receipt Date: 20140130
  Transmission Date: 20141002
  Serious: Yes (Death, Life-Threatening, Hospitalization, Other)
  Sender: FDA-Public Use
  Company Number: CN-PFIZER INC-2013197384

PATIENT
  Age: 58 Year
  Sex: Male

DRUGS (2)
  1. SUTENT [Suspect]
     Indication: GASTROINTESTINAL STROMAL TUMOUR
     Dosage: 37.5 MG, UNK (3 CAPSULES PER DAY)
     Route: 048
     Dates: start: 20130629, end: 20130704
  2. SUTENT [Suspect]
     Dosage: UNK
     Dates: start: 20130628

REACTIONS (2)
  - Shock [Fatal]
  - Tumour rupture [Fatal]
